FAERS Safety Report 9264127 (Version 1)
Quarter: 2013Q2

REPORT INFORMATION
  Report Type: Spontaneous
  Country: US (occurrence: US)
  Receive Date: 20130430
  Receipt Date: 20130430
  Transmission Date: 20140414
  Serious: No
  Sender: FDA-Public Use
  Company Number: US-PFIZER INC-2013131646

PATIENT
  Sex: Female
  Weight: 73.47 kg

DRUGS (4)
  1. MORPHINE SULFATE [Suspect]
     Dosage: UNK
  2. DILAUDID [Suspect]
  3. RIAZOLE [Suspect]
  4. AVELOX [Suspect]

REACTIONS (1)
  - Drug hypersensitivity [Unknown]
